FAERS Safety Report 7284262-1 (Version None)
Quarter: 2011Q1

REPORT INFORMATION
  Report Type: 
  Country: None (occurrence: None)
  Receive Date: 20110209
  Receipt Date: 20110203
  Transmission Date: 20110831
  Serious: Yes (Death, Hospitalization)
  Sender: FDA-Public Use
  Company Number: FR-PFIZER INC-2011025497

PATIENT
  Age: 73 Year
  Sex: Female

DRUGS (1)
  1. SUTENT [Suspect]
     Indication: RENAL CANCER METASTATIC

REACTIONS (4)
  - PLEURAL EFFUSION [None]
  - RENAL FAILURE ACUTE [None]
  - NEPHROTIC SYNDROME [None]
  - CARDIAC FAILURE [None]
